FAERS Safety Report 11910328 (Version 1)
Quarter: 2016Q1

REPORT INFORMATION
  Report Type: Spontaneous
  Country: US (occurrence: None)
  Receive Date: 20160111
  Receipt Date: 20160111
  Transmission Date: 20160526
  Serious: Yes (Life-Threatening, Hospitalization)
  Sender: FDA-Public Use
  Company Number: None

PATIENT
  Age: 84 Year
  Sex: Female
  Weight: 116 kg

DRUGS (12)
  1. NORVASC [Concomitant]
     Active Substance: AMLODIPINE BESYLATE
  2. RESTASIS [Concomitant]
     Active Substance: CYCLOSPORINE
  3. ULORIC [Concomitant]
     Active Substance: FEBUXOSTAT
  4. ZOCOR [Concomitant]
     Active Substance: SIMVASTATIN
  5. ELIQUIS [Suspect]
     Active Substance: APIXABAN
     Indication: ATRIAL FIBRILLATION
     Route: 048
     Dates: start: 20151206, end: 20151216
  6. DURAGESIC [Concomitant]
     Active Substance: FENTANYL
  7. LISINOPRIL. [Concomitant]
     Active Substance: LISINOPRIL
  8. SENNA S [Concomitant]
     Active Substance: DOCUSATE SODIUM\SENNA LEAF
  9. ZOLOFT [Concomitant]
     Active Substance: SERTRALINE HYDROCHLORIDE
  10. NORCO [Concomitant]
     Active Substance: ACETAMINOPHEN\HYDROCODONE BITARTRATE
  11. OS CAL [Concomitant]
  12. ASPIRIN. [Concomitant]
     Active Substance: ASPIRIN

REACTIONS (4)
  - Asthenia [None]
  - Anaemia [None]
  - Acute kidney injury [None]
  - Pericardial haemorrhage [None]

NARRATIVE: CASE EVENT DATE: 20151216
